FAERS Safety Report 9225392 (Version 2)
Quarter: 2013Q2

REPORT INFORMATION
  Report Type: Report from Study
  Country: US (occurrence: US)
  Receive Date: 20130411
  Receipt Date: 20130516
  Transmission Date: 20140414
  Serious: Yes (Other)
  Sender: FDA-Public Use
  Company Number: US-ROCHE-1208929

PATIENT
  Age: 49 Year
  Sex: Male

DRUGS (3)
  1. ALTEPLASE [Suspect]
     Indication: ISCHAEMIC STROKE
     Dosage: 10% BOLUS FOLLOWED BY THE REMAINING 90% AS AN INFUSION
     Route: 042
  2. ABCIXIMAB [Suspect]
     Indication: ISCHAEMIC STROKE
     Route: 042
  3. ABCIXIMAB [Suspect]
     Dosage: 0.125 MCG/KG/MIN
     Route: 042

REACTIONS (2)
  - NIH stroke scale score increased [Unknown]
  - Oedema [Unknown]
